FAERS Safety Report 4564198-7 (Version None)
Quarter: 2005Q1

REPORT INFORMATION
  Report Type: 
  Country: None (occurrence: None)
  Receive Date: 20050126
  Receipt Date: 20050110
  Transmission Date: 20050727
  Serious: Yes (Disabling)
  Sender: FDA-Public Use
  Company Number: 2005AC00054

PATIENT
  Age: 80 Year
  Sex: Male

DRUGS (9)
  1. PULMICORT [Suspect]
     Dosage: 200 UG BID IH
     Route: 055
  2. TAVANIC [Suspect]
     Indication: LOWER RESPIRATORY TRACT INFECTION
     Dosage: 500 MG DAILY PO
     Route: 048
     Dates: start: 20020401, end: 20020401
  3. TAVANIC [Suspect]
     Indication: LOWER RESPIRATORY TRACT INFECTION
     Dosage: 500 MG DAILY PO
     Route: 048
     Dates: start: 20020601
  4. NASALIDE [Suspect]
     Indication: LOWER RESPIRATORY TRACT INFECTION
     Dosage: TWO ACTUATIONS
     Dates: start: 20020601
  5. ISOPTIN [Concomitant]
  6. CERVOXAN [Concomitant]
  7. ASASANTINE [Concomitant]
  8. XALATAN [Concomitant]
  9. CARBOCISTEINE [Concomitant]

REACTIONS (8)
  - BRONCHITIS [None]
  - CHRONIC RESPIRATORY FAILURE [None]
  - DRUG INTERACTION [None]
  - DRUG TOXICITY [None]
  - INFLAMMATION [None]
  - LOWER RESPIRATORY TRACT INFECTION [None]
  - RENAL IMPAIRMENT [None]
  - TENDON RUPTURE [None]
